FAERS Safety Report 18558243 (Version 1)
Quarter: 2020Q4

REPORT INFORMATION
  Report Type: Spontaneous
  Country: NL (occurrence: US)
  Receive Date: 20201130
  Receipt Date: 20201130
  Transmission Date: 20210114
  Serious: Yes (Life-Threatening, Hospitalization, Other)
  Sender: FDA-Public Use
  Company Number: US-ASTELLAS-2020US041987

PATIENT
  Age: 84 Year
  Sex: Male

DRUGS (3)
  1. ENZALUTAMIDE [Suspect]
     Active Substance: ENZALUTAMIDE
     Indication: HORMONE-REFRACTORY PROSTATE CANCER
     Dosage: UNK UNK, UNKNOWN FREQ.
     Route: 065
  2. DOCETAXEL. [Interacting]
     Active Substance: DOCETAXEL
     Indication: HORMONE-REFRACTORY PROSTATE CANCER
     Dosage: UNK UNK, UNKNOWN FREQ.
     Route: 065
  3. DABIGATRAN [Interacting]
     Active Substance: DABIGATRAN
     Indication: ANTICOAGULANT THERAPY
     Route: 065

REACTIONS (19)
  - Lethargy [Unknown]
  - Cardiogenic shock [Unknown]
  - Mental status changes [Unknown]
  - Cardiac tamponade [Unknown]
  - Metabolic acidosis [Unknown]
  - Multiple organ dysfunction syndrome [Recovered/Resolved]
  - Hepatic function abnormal [Unknown]
  - Febrile neutropenia [Unknown]
  - Pericardial effusion [Unknown]
  - Pneumonia [Unknown]
  - Drug interaction [Unknown]
  - Condition aggravated [Unknown]
  - Haemodynamic instability [Unknown]
  - Blood potassium increased [Unknown]
  - Pericardial haemorrhage [Recovered/Resolved]
  - Transaminases increased [Unknown]
  - Oliguria [Unknown]
  - Activated partial thromboplastin time prolonged [Recovered/Resolved]
  - Acute kidney injury [Unknown]
